FAERS Safety Report 9581233 (Version 4)
Quarter: 2014Q2

REPORT INFORMATION
  Report Type: Spontaneous
  Country: AT (occurrence: AT)
  Receive Date: 20131002
  Receipt Date: 20140401
  Transmission Date: 20141212
  Serious: Yes (Other)
  Sender: FDA-Public Use
  Company Number: PHHY2013AT108153

PATIENT
  Age: 66 Year
  Sex: Female

DRUGS (5)
  1. CARVEDILOL HEXAL [Suspect]
     Indication: HYPERTENSION
     Dosage: 6.25 MG, QD
     Route: 048
     Dates: start: 2010, end: 20140202
  2. CARVEDILOL HEXAL [Suspect]
     Dosage: 1.6 MG, UNK
     Route: 048
     Dates: start: 20140115, end: 20140202
  3. INDAPAMID [Concomitant]
  4. EUTHYROX [Concomitant]
  5. PARIET [Concomitant]

REACTIONS (12)
  - Gastrointestinal infection [Recovered/Resolved]
  - Vertigo [Recovered/Resolved]
  - Blood pressure diastolic increased [Recovered/Resolved]
  - Hypersensitivity [Recovering/Resolving]
  - Eye swelling [Recovered/Resolved]
  - Atrioventricular block [Recovered/Resolved]
  - Back pain [Recovered/Resolved]
  - Hypokinesia [Recovered/Resolved]
  - Somnolence [Recovered/Resolved]
  - Weight decreased [Unknown]
  - Vomiting [Unknown]
  - Diarrhoea [Unknown]
